FAERS Safety Report 23361051 (Version 1)
Quarter: 2024Q1

REPORT INFORMATION
  Report Type: Spontaneous
  Country: US (occurrence: US)
  Receive Date: 20240103
  Receipt Date: 20240103
  Transmission Date: 20240410
  Serious: Yes (Other)
  Sender: FDA-Public Use
  Company Number: US-TARO PHARMACEUTICALS USA INC.-2023TAR01343

PATIENT
  Age: 31 Year
  Sex: Female

DRUGS (3)
  1. KETOCONAZOLE [Suspect]
     Active Substance: KETOCONAZOLE
     Indication: Hyperadrenocorticism
     Dosage: UNK
     Route: 065
  2. SPIRONOLACTONE [Suspect]
     Active Substance: SPIRONOLACTONE
     Indication: Hyperadrenocorticism
     Dosage: UNK
     Route: 065
  3. INSULIN NOS [Suspect]
     Active Substance: INSULIN NOS
     Indication: Hyperadrenocorticism
     Dosage: UNK
     Route: 065

REACTIONS (3)
  - Acute psychosis [Unknown]
  - Hypertransaminasaemia [Unknown]
  - Cortisol abnormal [Unknown]
